FAERS Safety Report 9109645 (Version 3)
Quarter: 2013Q2

REPORT INFORMATION
  Report Type: Spontaneous
  Country: US (occurrence: US)
  Receive Date: 20130222
  Receipt Date: 20130412
  Transmission Date: 20140414
  Serious: No
  Sender: FDA-Public Use
  Company Number: US-PFIZER INC-2013064236

PATIENT
  Age: 41 Year
  Sex: Female

DRUGS (5)
  1. LEVOXYL [Suspect]
     Indication: THYROID DISORDER
     Dosage: 150 UG, 1X/DAY
     Route: 048
     Dates: start: 20110509
  2. LEVOXYL [Suspect]
     Dosage: 150 UG, 1X/DAY
     Route: 048
     Dates: start: 20110509
  3. INSULIN [Concomitant]
     Dosage: UNK
  4. NOVOLIN R [Concomitant]
     Dosage: 18 UNITS OF AM, 18 UNITS OF PM
  5. NOVOLIN N [Concomitant]
     Dosage: UNK

REACTIONS (2)
  - Product quality issue [Not Recovered/Not Resolved]
  - Malaise [Unknown]
